FAERS Safety Report 6988506-2 (Version None)
Quarter: 2010Q3

REPORT INFORMATION
  Report Type: 
  Country: None (occurrence: None)
  Receive Date: 20100916
  Receipt Date: 20100913
  Transmission Date: 20110219
  Serious: Yes (Death, Hospitalization)
  Sender: FDA-Public Use
  Company Number: SE-BAYER-201027054GPV

PATIENT
  Age: 72 Year
  Sex: Male
  Weight: 79 kg

DRUGS (9)
  1. NEXAVAR [Suspect]
     Indication: HEPATIC NEOPLASM MALIGNANT
     Route: 048
     Dates: start: 20100429, end: 20100528
  2. ATENOLOL [Concomitant]
     Dates: start: 20070101
  3. COMBIVENT INHALATION [Concomitant]
     Route: 055
     Dates: start: 20050101
  4. FUROSEMID [Concomitant]
  5. LEVOTHYROXINE SODIUM [Concomitant]
     Dates: start: 20000101
  6. NORVASC [Concomitant]
     Dates: start: 20070101
  7. SYMBICORT [Concomitant]
     Route: 055
     Dates: start: 20060101
  8. ASPIRIN [Concomitant]
     Dates: start: 20060101
  9. ZESTRIL [Concomitant]
     Dates: start: 19950101

REACTIONS (1)
  - DEHYDRATION [None]
